FAERS Safety Report 7555405-7 (Version None)
Quarter: 2011Q2

REPORT INFORMATION
  Report Type: 
  Country: None (occurrence: None)
  Receive Date: 20110617
  Receipt Date: 20110602
  Transmission Date: 20111010
  Serious: No
  Sender: FDA-Public Use
  Company Number: US-B.I. PHARMACEUTICALS,INC./RIDGEFIELD-2011-BP-12245BP

PATIENT
  Sex: Female

DRUGS (13)
  1. VIT D [Concomitant]
  2. PREMARIN [Concomitant]
  3. FLECAINIDE ACETATE [Concomitant]
  4. ACTONEL [Concomitant]
  5. VIT C [Concomitant]
     Dosage: 100 MG
  6. GLUCOSAMINE [Concomitant]
  7. OMEPRAZOLE [Concomitant]
  8. HYDROCHLOROTHIAZIDE [Concomitant]
  9. CENTRUM SILVER MULTI VIT [Concomitant]
  10. PRADAXA [Suspect]
     Indication: ATRIAL FIBRILLATION
     Dosage: 300 MG
     Route: 048
     Dates: start: 20110422
  11. CELEBREX [Concomitant]
  12. ESTROVEN EXTRA STRENGTH [Concomitant]
  13. DILTIAZEM [Concomitant]

REACTIONS (1)
  - FATIGUE [None]
